FAERS Safety Report 20741552 (Version 1)
Quarter: 2022Q2

REPORT INFORMATION
  Report Type: Spontaneous
  Country: ES (occurrence: ES)
  Receive Date: 20220422
  Receipt Date: 20220422
  Transmission Date: 20220720
  Serious: Yes (Hospitalization)
  Sender: FDA-Public Use
  Company Number: None

PATIENT
  Age: 36 Year
  Sex: Male

DRUGS (3)
  1. ACYCLOVIR [Suspect]
     Active Substance: ACYCLOVIR
     Indication: Oral herpes
     Dosage: 400MG C/8H (400MG EVERY 8H)
     Route: 042
     Dates: start: 20220214, end: 20220216
  2. DEXKETOPROFEN [Suspect]
     Active Substance: DEXKETOPROFEN
     Indication: Odynophagia
     Route: 042
     Dates: start: 20220214, end: 20220215
  3. METAMIZOL SODIUM [Concomitant]
     Active Substance: METAMIZOL SODIUM
     Indication: Odynophagia
     Route: 042
     Dates: start: 20220214

REACTIONS (1)
  - Acute kidney injury [Recovered/Resolved]

NARRATIVE: CASE EVENT DATE: 20220215
